FAERS Safety Report 6664149-5 (Version None)
Quarter: 2010Q2

REPORT INFORMATION
  Report Type: 
  Country: None (occurrence: None)
  Receive Date: 20100401
  Receipt Date: 20100324
  Transmission Date: 20101027
  Serious: Yes (Other)
  Sender: FDA-Public Use
  Company Number: B0644322A

PATIENT
  Age: 54 Year
  Sex: Female

DRUGS (3)
  1. PAXIL [Suspect]
     Indication: DEPRESSION
     Route: 048
     Dates: start: 20071201
  2. CLONAZEPAM [Concomitant]
     Indication: DEPRESSION
     Route: 065
     Dates: start: 20100316
  3. ALPRAZOLAM [Concomitant]
     Indication: DEPRESSION
     Route: 065

REACTIONS (2)
  - OPTIC ATROPHY [None]
  - VISION BLURRED [None]
